FAERS Safety Report 4348617-7 (Version None)
Quarter: 2004Q2

REPORT INFORMATION
  Report Type: 
  Country: None (occurrence: None)
  Receive Date: 20040427
  Receipt Date: 20040416
  Transmission Date: 20050107
  Serious: Yes (Other)
  Sender: FDA-Public Use
  Company Number: FR-BRISTOL-MYERS SQUIBB COMPANY-12568812

PATIENT
  Age: 61 Year
  Sex: Male

DRUGS (2)
  1. DAIVONEX [Suspect]
     Indication: PSORIASIS
     Dosage: DOSING: 2 APPLICATION (1 APPLICATION, 2 IN 1).
     Route: 061
     Dates: start: 20040210, end: 20040217
  2. CAPTEA [Concomitant]
     Indication: HYPERTENSION
     Dosage: DOSING: 1 DF (1DF, 1 IN D)
     Route: 048
     Dates: start: 19930101

REACTIONS (1)
  - DERMATITIS CONTACT [None]
